FAERS Safety Report 21785780 (Version 1)
Quarter: 2022Q4

REPORT INFORMATION
  Report Type: Other
  Country: None (occurrence: US)
  Receive Date: 20221227
  Receipt Date: 20221227
  Transmission Date: 20230113
  Serious: Yes (Other)
  Sender: FDA-Public Use
  Company Number: US-MLMSERVICE-20221206-3936824-1

PATIENT
  Age: 87 Year
  Sex: Male

DRUGS (1)
  1. OXYGEN [Suspect]
     Active Substance: OXYGEN
     Indication: Rectal haemorrhage

REACTIONS (2)
  - Generalised tonic-clonic seizure [Unknown]
  - Neurotoxicity [Unknown]
